FAERS Safety Report 8211332-3 (Version None)
Quarter: 2012Q1

REPORT INFORMATION
  Report Type: 
  Country: None (occurrence: None)
  Receive Date: 20120315
  Receipt Date: 20120315
  Transmission Date: 20120608
  Serious: Yes (Other)
  Sender: FDA-Public Use
  Company Number: None

PATIENT
  Sex: Female
  Weight: 113.39 kg

DRUGS (2)
  1. LUVOX [Suspect]
     Indication: OBSESSIVE-COMPULSIVE DISORDER
     Dosage: 100.0 MG
     Route: 048
  2. FLUVOXAMINE MALEATE [Concomitant]
     Indication: OBSESSIVE-COMPULSIVE DISORDER
     Dosage: 100MG
     Route: 048

REACTIONS (9)
  - MUSCLE INJURY [None]
  - TIC [None]
  - AURA [None]
  - UNRESPONSIVE TO STIMULI [None]
  - NERVE INJURY [None]
  - SYNCOPE [None]
  - FALL [None]
  - PRODUCT SUBSTITUTION ISSUE [None]
  - FEELING ABNORMAL [None]
